FAERS Safety Report 8529599-0 (Version None)
Quarter: 2012Q3

REPORT INFORMATION
  Report Type: 
  Country: None (occurrence: None)
  Receive Date: 20120723
  Receipt Date: 20120709
  Transmission Date: 20120928
  Serious: Yes (Hospitalization)
  Sender: FDA-Public Use
  Company Number: FR-MYLANLABS-2012S1014097

PATIENT
  Age: 65 Year
  Sex: Female

DRUGS (6)
  1. VENLAFAXINE [Concomitant]
     Dosage: 225 MG/DAY
     Route: 065
  2. DIAZEPAM [Suspect]
     Indication: ALCOHOLISM
     Dosage: STARTED AT 40 MG/DAY, PROGRESSIVELY DECREASED FOR 2 WEEKS
     Route: 065
  3. DIAZEPAM [Suspect]
     Dosage: 10 MG/DAY FOR 2 DAYS AT TIME OF ADMISSION
     Route: 065
  4. TRAMADOL HYDROCHLORIDE [Concomitant]
     Indication: BONE PAIN
     Dosage: 50 MG/DAY
     Route: 065
  5. ACAMPROSATE [Concomitant]
     Dosage: 1332 MG/DAY
     Route: 065
  6. TAMOXIFEN CITRATE [Concomitant]
     Indication: BREAST CANCER
     Dosage: 20 MG/DAY
     Route: 065

REACTIONS (2)
  - CATATONIA [None]
  - DRUG WITHDRAWAL SYNDROME [None]
